FAERS Safety Report 9678921 (Version 1)
Quarter: 2013Q4

REPORT INFORMATION
  Report Type: Spontaneous
  Country: US (occurrence: US)
  Receive Date: 20131108
  Receipt Date: 20131108
  Transmission Date: 20140711
  Serious: Yes (Other)
  Sender: FDA-Public Use
  Company Number: US-PFIZER INC-2013318221

PATIENT
  Sex: Female

DRUGS (4)
  1. LYRICA [Suspect]
     Dosage: 150 MG, UNK
  2. LYRICA [Suspect]
     Dosage: UNK
  3. ZOFRAN [Suspect]
     Indication: NAUSEA
     Dosage: UNK
  4. ZOFRAN [Suspect]
     Indication: APHAGIA

REACTIONS (4)
  - Aphagia [Unknown]
  - Nausea [Unknown]
  - Dehydration [Unknown]
  - Drug effect incomplete [Unknown]
